FAERS Safety Report 4881161-7 (Version None)
Quarter: 2006Q1

REPORT INFORMATION
  Report Type: 
  Country: None (occurrence: None)
  Receive Date: 20060116
  Receipt Date: 20060109
  Transmission Date: 20060701
  Serious: Yes (Other)
  Sender: FDA-Public Use
  Company Number: US-JNJFOC-20051104799

PATIENT
  Sex: Male
  Weight: 66.68 kg

DRUGS (5)
  1. REMICADE [Suspect]
     Indication: RHEUMATOID ARTHRITIS
     Dosage: TOTAL OF 22 INFUSIONS RECEIVED
     Route: 042
  2. METHOTREXATE [Concomitant]
  3. FOLIC ACID [Concomitant]
  4. NAPROSYN [Concomitant]
  5. PLAQUENIL [Concomitant]

REACTIONS (1)
  - PERITONEAL TUBERCULOSIS [None]
